FAERS Safety Report 21312552 (Version 1)
Quarter: 2022Q3

REPORT INFORMATION
  Report Type: Spontaneous
  Country: US (occurrence: None)
  Receive Date: 20220909
  Receipt Date: 20220909
  Transmission Date: 20221027
  Serious: No
  Sender: FDA-Public Use
  Company Number: US-ARIS GLOBAL-202206-1201

PATIENT
  Sex: Male
  Weight: 66.738 kg

DRUGS (19)
  1. OXERVATE [Suspect]
     Active Substance: CENEGERMIN-BKBJ
     Indication: Neurotrophic keratopathy
     Route: 047
     Dates: start: 20220511
  2. REFRESH OPTIVE MEGA-3 [Concomitant]
     Active Substance: CARBOXYMETHYLCELLULOSE SODIUM\GLYCERIN\POLYSORBATE 80
  3. DOXYCYCLINE HYCLATE [Concomitant]
     Active Substance: DOXYCYCLINE HYCLATE
  4. PROBIOTIC+ACIDOPHILLUS [Concomitant]
  5. CALCIUM [Concomitant]
     Active Substance: CALCIUM
     Dosage: 500(1250)
  6. VITAMIN C [Concomitant]
     Active Substance: ASCORBIC ACID
  7. FLAXSEED [Concomitant]
     Active Substance: FLAX SEED
  8. MOXIFLOXACIN [Concomitant]
     Active Substance: MOXIFLOXACIN
  9. LOTEMAX [Concomitant]
     Active Substance: LOTEPREDNOL ETABONATE
     Dosage: DROPS GEL
  10. ALPHAGAN P [Concomitant]
     Active Substance: BRIMONIDINE TARTRATE
  11. MYCOPHENOLIC ACID [Concomitant]
     Active Substance: MYCOPHENOLIC ACID
     Dosage: DELAYED RELEASE
  12. METOPROLOL TARTRATE [Concomitant]
     Active Substance: METOPROLOL TARTRATE
  13. TACROLIMUS [Concomitant]
     Active Substance: TACROLIMUS
  14. VALACYCLOVIR [Concomitant]
     Active Substance: VALACYCLOVIR HYDROCHLORIDE
  15. NIFEDIPINE [Concomitant]
     Active Substance: NIFEDIPINE
     Dosage: EXTENDED RELEASE 24 HOURS
  16. PREDNISONE [Concomitant]
     Active Substance: PREDNISONE
  17. SIMVASTATIN [Concomitant]
     Active Substance: SIMVASTATIN
  18. FLUOROURACIL [Concomitant]
     Active Substance: FLUOROURACIL
  19. REGENER-EYES [Concomitant]

REACTIONS (1)
  - Fall [Unknown]
